FAERS Safety Report 13038635 (Version 6)
Quarter: 2019Q3

REPORT INFORMATION
  Report Type: Report from Study
  Country: JP (occurrence: JP)
  Receive Date: 20161219
  Receipt Date: 20190920
  Transmission Date: 20191004
  Serious: Yes (Hospitalization, Other)
  Sender: FDA-Public Use
  Company Number: JP-AEGERION PHARMACEUTICAL INC.-AEGR002872

PATIENT

DRUGS (29)
  1. NOVORAPID [Concomitant]
     Active Substance: INSULIN ASPART
     Dosage: 20 IU/DAY
     Dates: start: 20160808, end: 20160808
  2. METGLUCO [Concomitant]
     Active Substance: METFORMIN HYDROCHLORIDE
     Dosage: 1500 MG/DAY
     Dates: start: 20160810, end: 20180520
  3. AIMIX [Concomitant]
     Active Substance: AMLODIPINE BESYLATE\IRBESARTAN
     Indication: HYPERTENSION
     Dosage: 1 DOSAGE FORM/DAY
     Route: 048
     Dates: start: 20161024, end: 20180121
  4. FUROSEMIDE. [Concomitant]
     Active Substance: FUROSEMIDE
     Indication: PRODUCT USED FOR UNKNOWN INDICATION
     Dosage: 80 MG, QD
     Route: 048
     Dates: start: 20180423, end: 20180520
  5. FUROSEMIDE. [Concomitant]
     Active Substance: FUROSEMIDE
     Dosage: 20 MG, QD
     Route: 048
     Dates: start: 20180521
  6. LANTUS [Concomitant]
     Active Substance: INSULIN GLARGINE
     Indication: PRODUCT USED FOR UNKNOWN INDICATION
     Dosage: 6 IU, QD
     Route: 065
     Dates: start: 20140512, end: 20160809
  7. NOVORAPID [Concomitant]
     Active Substance: INSULIN ASPART
     Dosage: 14 IU/DAY
     Dates: start: 20160809, end: 20160809
  8. PIOGLITAZONE                       /01460202/ [Concomitant]
     Active Substance: PIOGLITAZONE HYDROCHLORIDE
     Dosage: 30 MG/DAY
     Dates: start: 20160812
  9. AZOSEMIDE [Concomitant]
     Active Substance: AZOSEMIDE
     Indication: NEPHROPATHY
     Dosage: 30 MG/DAY
     Route: 048
     Dates: start: 20161128, end: 20180422
  10. LANTUS XR [Concomitant]
     Active Substance: INSULIN GLARGINE
     Dosage: 20 IU, QD
     Dates: start: 20180618
  11. TANATRIL [Concomitant]
     Active Substance: IMIDAPRIL
     Indication: PRODUCT USED FOR UNKNOWN INDICATION
     Dosage: 5 MG, QD
     Route: 048
     Dates: start: 20150420, end: 20161023
  12. NOVORAPID [Concomitant]
     Active Substance: INSULIN ASPART
     Dosage: 28 IU/DAY
     Dates: start: 20160730, end: 20160806
  13. AIMIX [Concomitant]
     Active Substance: AMLODIPINE BESYLATE\IRBESARTAN
     Indication: PRODUCT USED FOR UNKNOWN INDICATION
     Dosage: 1 DOSAGE FROM/DAY
     Route: 048
     Dates: start: 20180122
  14. PIOGLITAZONE                       /01460202/ [Concomitant]
     Active Substance: PIOGLITAZONE HYDROCHLORIDE
     Indication: PRODUCT USED FOR UNKNOWN INDICATION
     Dosage: 15 MG/DAY
     Route: 048
     Dates: start: 20160801, end: 20160811
  15. GLUBES [Concomitant]
     Active Substance: MITIGLINIDE CALCIUM HYDRATE\VOGLIBOSE
     Indication: PRODUCT USED FOR UNKNOWN INDICATION
     Dosage: 2 DOSAGE/FORM/DAY
     Route: 048
     Dates: start: 20170925
  16. METGLUCO [Concomitant]
     Active Substance: METFORMIN HYDROCHLORIDE
     Dosage: 500 MG, QD
     Route: 048
     Dates: start: 20180521, end: 20180722
  17. DEBERZA [Concomitant]
     Active Substance: TOFOGLIFLOZIN
     Indication: PRODUCT USED FOR UNKNOWN INDICATION
     Dosage: 20 MG/DAY
     Route: 048
     Dates: start: 20161226
  18. UNASYN S [Concomitant]
     Active Substance: AMPICILLIN SODIUM\SULBACTAM SODIUM
     Indication: CELLULITIS
     Dosage: UNK
     Dates: start: 20160725, end: 20160807
  19. UNASYN                             /00903602/ [Concomitant]
     Active Substance: SULTAMICILLIN TOSYLATE
     Indication: CELLULITIS
     Dosage: UNK
     Dates: start: 20160808, end: 20160828
  20. AIMIX [Concomitant]
     Active Substance: AMLODIPINE BESYLATE\IRBESARTAN
     Indication: PRODUCT USED FOR UNKNOWN INDICATION
     Dosage: 1 DOSAGE FORM/DAY
     Route: 048
     Dates: start: 20180423
  21. LANTUS XR [Concomitant]
     Active Substance: INSULIN GLARGINE
     Indication: PRODUCT USED FOR UNKNOWN INDICATION
     Dosage: 10 IU, QD
     Dates: start: 20180521, end: 20180617
  22. METRELEPTIN SHIONOGI [Suspect]
     Active Substance: METRELEPTIN
     Dosage: 2 MG, QD
     Route: 058
     Dates: start: 20130924
  23. VICTOZA [Concomitant]
     Active Substance: LIRAGLUTIDE
     Indication: PRODUCT USED FOR UNKNOWN INDICATION
     Dosage: 0.9 MG/DAY
     Route: 065
     Dates: end: 20160724
  24. NOVORAPID [Concomitant]
     Active Substance: INSULIN ASPART
     Dosage: 24 IU/DAY
     Dates: start: 20160807, end: 20160807
  25. METGLUCO [Concomitant]
     Active Substance: METFORMIN HYDROCHLORIDE
     Indication: PRODUCT USED FOR UNKNOWN INDICATION
     Dosage: 750 MG/DAY
     Route: 048
     Dates: start: 20160804, end: 20160809
  26. METRELEPTIN SHIONOGI [Suspect]
     Active Substance: METRELEPTIN
     Indication: LIPOATROPHY
     Dosage: 2 MG, QD
     Route: 058
     Dates: start: 200301, end: 20130923
  27. NOVORAPID [Concomitant]
     Active Substance: INSULIN ASPART
     Indication: PRODUCT USED FOR UNKNOWN INDICATION
     Dosage: 22 IU/DAY
     Dates: start: 20160726, end: 20160729
  28. NOVORAPID [Concomitant]
     Active Substance: INSULIN ASPART
     Dosage: 8 IU/DAY
     Dates: start: 20160810, end: 20160810
  29. VOGLIBOSE OD [Concomitant]
     Active Substance: VOGLIBOSE
     Indication: PRODUCT USED FOR UNKNOWN INDICATION
     Dosage: 0.9 MG/DAY
     Route: 048
     Dates: start: 20160809, end: 20170924

REACTIONS (4)
  - Nephrogenic anaemia [Not Recovered/Not Resolved]
  - Hypertension [Recovering/Resolving]
  - Nephropathy [Not Recovered/Not Resolved]
  - Cellulitis [Recovering/Resolving]

NARRATIVE: CASE EVENT DATE: 20151228
